FAERS Safety Report 25286828 (Version 1)
Quarter: 2025Q2

REPORT INFORMATION
  Report Type: Spontaneous
  Country: GB (occurrence: GB)
  Receive Date: 20250509
  Receipt Date: 20250509
  Transmission Date: 20250716
  Serious: Yes (Other)
  Sender: CHEPLAPHARM
  Company Number: GB-CHEPLA-2025005670

PATIENT
  Age: 28 Year
  Sex: Female

DRUGS (12)
  1. ORLISTAT [Interacting]
     Active Substance: ORLISTAT
     Indication: Weight abnormal
     Dates: start: 20230324
  2. APIXABAN [Interacting]
     Active Substance: APIXABAN
     Indication: Deep vein thrombosis
     Dates: start: 2022
  3. CANDESARTAN [Concomitant]
     Active Substance: CANDESARTAN
     Dosage: 1 DAILY?DAILY DOSE: 1 DOSAGE FORM
  4. CHOLECALCIFEROL [Concomitant]
     Active Substance: CHOLECALCIFEROL
     Dosage: 1 DAILY?DAILY DOSE: 1 DOSAGE FORM
  5. CYCLIZINE [Concomitant]
     Active Substance: CYCLIZINE
  6. TRAMADOL [Concomitant]
     Active Substance: TRAMADOL
  7. GABAPENTIN [Concomitant]
     Active Substance: GABAPENTIN
  8. MIRTAZAPINE [Concomitant]
     Active Substance: MIRTAZAPINE
     Dosage: 1 AT NIGHT?DAILY DOSE: 1 DOSAGE FORM
  9. MONTELUKAST [Concomitant]
     Active Substance: MONTELUKAST
     Dosage: 1 AT NIGHT?DAILY DOSE: 1 DOSAGE FORM
  10. PIROXICAM [Concomitant]
     Active Substance: PIROXICAM
  11. ZOPICLONE [Concomitant]
     Active Substance: ZOPICLONE
     Dosage: 1 AT NIGHT?DAILY DOSE: 1 DOSAGE FORM
  12. ALBUTEROL [Concomitant]
     Active Substance: ALBUTEROL
     Route: 055

REACTIONS (2)
  - Deep vein thrombosis [Unknown]
  - Drug interaction [Unknown]
